FAERS Safety Report 13393399 (Version 1)
Quarter: 2017Q1

REPORT INFORMATION
  Report Type: Spontaneous
  Country: US (occurrence: US)
  Receive Date: 20170331
  Receipt Date: 20170331
  Transmission Date: 20170429
  Serious: No
  Sender: FDA-Public Use
  Company Number: US-SEPTODONT-201603537

PATIENT
  Age: 69 Year
  Sex: Male
  Weight: 83.9 kg

DRUGS (12)
  1. SIMVASTATIN. [Concomitant]
     Active Substance: SIMVASTATIN
  2. BETAMETHASONE. [Concomitant]
     Active Substance: BETAMETHASONE
  3. METFORMIN HYDROCHLORIDE. [Concomitant]
     Active Substance: METFORMIN HYDROCHLORIDE
  4. INDOMETHACIN SODIUM TRIHYDRATE [Concomitant]
  5. ULTRACARE ANESTHETIC 6.96 G/30ML GEL [Concomitant]
     Route: 061
     Dates: start: 2016, end: 2016
  6. LIDOCAINE HYDROCHLORIDE 2% WITH EPINEPHRINE 1:100,000 INJECTION [Suspect]
     Active Substance: EPINEPHRINE\LIDOCAINE HYDROCHLORIDE
     Indication: LOCAL ANAESTHESIA
     Dosage: LEFT BLOCK PERFORMED WITH HENRY SCHEIN 1 3/8^ 27G NEEDLE
     Route: 004
     Dates: start: 2016, end: 2016
  7. GLIPIZIDE. [Concomitant]
     Active Substance: GLIPIZIDE
  8. FLUTICASONE PROPIONATE. [Concomitant]
     Active Substance: FLUTICASONE PROPIONATE
     Dosage: SPRAY
  9. CLOTRIMAZOLE. [Concomitant]
     Active Substance: CLOTRIMAZOLE
  10. LISINOPRIL. [Concomitant]
     Active Substance: LISINOPRIL
  11. ALLOPURINOL. [Concomitant]
     Active Substance: ALLOPURINOL
  12. ACETYLSALICYLIC ACID [Concomitant]
     Active Substance: ASPIRIN

REACTIONS (3)
  - Abnormal sensation in eye [Recovered/Resolved]
  - Joint stiffness [Recovered/Resolved]
  - Pain in jaw [Recovered/Resolved]

NARRATIVE: CASE EVENT DATE: 20160713
